FAERS Safety Report 10087690 (Version 1)
Quarter: 2014Q2

REPORT INFORMATION
  Report Type: Spontaneous
  Country: US (occurrence: US)
  Receive Date: 20140418
  Receipt Date: 20140418
  Transmission Date: 20141212
  Serious: No
  Sender: FDA-Public Use
  Company Number: US-PURDUE-USA-2013-0109952

PATIENT
  Sex: Male

DRUGS (1)
  1. OXYCODONE HCL CR TABLETS (SIMILAR TO NDA 22-272) [Suspect]
     Indication: PRODUCT USED FOR UNKNOWN INDICATION
     Dosage: 50 MG, UNK
     Route: 048

REACTIONS (5)
  - Intentional product misuse [Unknown]
  - Tremor [Unknown]
  - Dizziness [Unknown]
  - Drug ineffective [Unknown]
  - Nervousness [Unknown]
